FAERS Safety Report 7732944-7 (Version None)
Quarter: 2011Q3

REPORT INFORMATION
  Report Type: 
  Country: None (occurrence: None)
  Receive Date: 20110907
  Receipt Date: 20110902
  Transmission Date: 20111222
  Serious: Yes (Hospitalization, Other)
  Sender: FDA-Public Use
  Company Number: CO-PFIZER INC-2011074579

PATIENT
  Age: 59 Year
  Sex: Female

DRUGS (6)
  1. RAPAMUNE [Suspect]
     Indication: RENAL TRANSPLANT
     Dosage: 1 MG, 1X/DAY
     Route: 048
     Dates: start: 20080818
  2. FERROUS SULFATE [Concomitant]
  3. RAPAMUNE [Suspect]
     Dosage: 1 MG, ALTERNATE DAY
     Route: 048
     Dates: end: 20110101
  4. AMITRIPTYLINE [Concomitant]
  5. METFORMIN [Concomitant]
  6. TRIMETHOPRIM SULFATE [Concomitant]

REACTIONS (2)
  - HERPES VIRUS INFECTION [None]
  - SKIN ULCER [None]
